FAERS Safety Report 6923108-5 (Version None)
Quarter: 2010Q3

REPORT INFORMATION
  Report Type: 
  Country: None (occurrence: None)
  Receive Date: 20100813
  Receipt Date: 20100806
  Transmission Date: 20110219
  Serious: Yes (Other)
  Sender: FDA-Public Use
  Company Number: JP-PFIZER INC-2010098836

PATIENT
  Age: 50 Year
  Sex: Female

DRUGS (7)
  1. ZOLOFT [Suspect]
     Indication: DEPRESSION
     Dosage: 50 MG/DAY
     Route: 048
     Dates: start: 20090601
  2. AROMASIN [Concomitant]
     Indication: BREAST CANCER
     Dosage: UNK
     Route: 048
     Dates: start: 20070101
  3. MEILAX [Concomitant]
     Indication: DEPRESSION
     Dosage: UNK
     Route: 048
  4. LIMAS [Concomitant]
     Dosage: UNK
     Route: 048
  5. SEROQUEL [Concomitant]
     Dosage: UNK
     Route: 048
  6. CALONAL [Concomitant]
     Dosage: UNK
  7. MYONAL [Concomitant]
     Dosage: UNK
     Route: 048

REACTIONS (1)
  - BIPOLAR I DISORDER [None]
